FAERS Safety Report 14674815 (Version 1)
Quarter: 2018Q1

REPORT INFORMATION
  Report Type: Spontaneous
  Country: IT (occurrence: None)
  Receive Date: 20180314
  Receipt Date: 20180314
  Transmission Date: 20180509
  Serious: Yes (Other)
  Sender: FDA-Public Use
  Company Number: FK201802801

PATIENT
  Age: 47 Year
  Sex: Female

DRUGS (4)
  1. BEVACIZUMAB. [Concomitant]
     Active Substance: BEVACIZUMAB
  2. OXALIPLATIN (MANUFACTURER UNKNOWN)(OXALIPLATIN)(OXALIPLATIN) [Suspect]
     Active Substance: OXALIPLATIN
     Indication: SMALL INTESTINE CARCINOMA
  3. FOLINIC ACID [Concomitant]
     Active Substance: LEUCOVORIN
  4. 5-FLUOROURACIL(FLUOROURACIL) [Concomitant]

REACTIONS (12)
  - Rash follicular [None]
  - Gastrointestinal toxicity [None]
  - Off label use [None]
  - Mucosal inflammation [None]
  - Product use in unapproved indication [None]
  - Nausea [None]
  - Small intestine carcinoma metastatic [None]
  - Malignant neoplasm progression [None]
  - Metastases to lymph nodes [None]
  - Hypertension [None]
  - Metastases to pelvis [None]
  - Metastases to lung [None]
